FAERS Safety Report 14939734 (Version 1)
Quarter: 2018Q2

REPORT INFORMATION
  Report Type: Spontaneous
  Country: CA (occurrence: CA)
  Receive Date: 20180525
  Receipt Date: 20180525
  Transmission Date: 20180711
  Serious: Yes (Other)
  Sender: FDA-Public Use
  Company Number: CA-TEVA-2018-CA-895657

PATIENT
  Age: 9 Year
  Sex: Male
  Weight: 51 kg

DRUGS (8)
  1. VINCRISTINE SULFATE. [Suspect]
     Active Substance: VINCRISTINE SULFATE
     Route: 042
  2. CYTARABINE. [Concomitant]
     Active Substance: CYTARABINE
     Route: 037
  3. METHOTREXATE. [Concomitant]
     Active Substance: METHOTREXATE
  4. PEG-L-ASPARAGINASE [Concomitant]
     Active Substance: PEGASPARGASE
  5. DOXORUBICIN HYDROCHLORIDE. [Concomitant]
     Active Substance: DOXORUBICIN HYDROCHLORIDE
  6. HYDROCORTISONE. [Concomitant]
     Active Substance: HYDROCORTISONE
  7. VINCRISTINE SULFATE. [Suspect]
     Active Substance: VINCRISTINE SULFATE
     Indication: ACUTE LYMPHOCYTIC LEUKAEMIA
     Route: 042
  8. MERCAPTOPURINE. [Concomitant]
     Active Substance: MERCAPTOPURINE

REACTIONS (12)
  - Back pain [Unknown]
  - Orthostatic hypotension [Unknown]
  - Motor dysfunction [Unknown]
  - Musculoskeletal stiffness [Unknown]
  - Neuralgia [Unknown]
  - Pain in jaw [Unknown]
  - Arthralgia [Unknown]
  - Gait disturbance [Unknown]
  - Loss of consciousness [Unknown]
  - Ear pain [Unknown]
  - Joint stiffness [Unknown]
  - Vertigo [Unknown]
